FAERS Safety Report 10218744 (Version 1)
Quarter: 2014Q2

REPORT INFORMATION
  Report Type: Spontaneous
  Country: DE (occurrence: DE)
  Receive Date: 20140605
  Receipt Date: 20140605
  Transmission Date: 20141212
  Serious: Yes (Other)
  Sender: FDA-Public Use
  Company Number: PHHY2014DE067529

PATIENT
  Sex: Female

DRUGS (12)
  1. ZOMETA [Suspect]
     Indication: NEUROENDOCRINE CARCINOMA METASTATIC
     Dosage: UNK UKN, UNK
     Dates: start: 200806
  2. SOMATOSTATIN [Concomitant]
     Dosage: UNK UKN, UNK
     Dates: start: 2002
  3. SOMATOSTATIN [Concomitant]
     Dosage: UNK UKN, UNK
     Dates: start: 200804
  4. SOMATOSTATIN [Concomitant]
     Dosage: 50 MG, PER MONTH
     Dates: start: 200808
  5. INTERFERON ALFA [Concomitant]
     Dosage: UNK UKN, UNK
     Dates: start: 200910, end: 201102
  6. SUTENT [Concomitant]
     Dosage: UNK UKN, UNK
     Dates: start: 201102, end: 201109
  7. EVEROLIMUS [Concomitant]
     Dosage: UNK UKN, UNK
     Dates: start: 201109
  8. EVEROLIMUS [Concomitant]
     Dosage: UNK UKN, UNK
     Dates: start: 201307, end: 201312
  9. SANDOSTATIN [Concomitant]
     Dosage: UNK UKN, UNK
     Dates: start: 201109
  10. NOVAMIN [Concomitant]
     Dosage: UNK UKN, UNK
  11. GABAPENTIN [Concomitant]
     Dosage: UNK UKN, UNK
  12. TRAMADOL [Concomitant]
     Dosage: UNK UKN, UNK

REACTIONS (7)
  - Cholecystitis acute [Unknown]
  - Malignant neoplasm progression [Unknown]
  - Hepatic lesion [Unknown]
  - Flushing [Unknown]
  - Blood chromogranin A increased [Unknown]
  - General physical health deterioration [Unknown]
  - Pain [Unknown]
